FAERS Safety Report 7088207-9 (Version None)
Quarter: 2010Q4

REPORT INFORMATION
  Report Type: 
  Country: None (occurrence: None)
  Receive Date: 20101108
  Receipt Date: 20101028
  Transmission Date: 20110411
  Serious: Yes (Hospitalization)
  Sender: FDA-Public Use
  Company Number: AU-JNJFOC-20101100453

PATIENT
  Sex: Male

DRUGS (1)
  1. REMICADE [Suspect]
     Indication: GASTRIC DISORDER
     Route: 042

REACTIONS (1)
  - MALAISE [None]
